FAERS Safety Report 5599536-X (Version None)
Quarter: 2008Q1

REPORT INFORMATION
  Report Type: 
  Country: None (occurrence: None)
  Receive Date: 20080123
  Receipt Date: 20080115
  Transmission Date: 20080703
  Serious: Yes (Hospitalization)
  Sender: FDA-Public Use
  Company Number: US-ASTRAZENECA-2008UW01230

PATIENT
  Age: 880 Month
  Sex: Male
  Weight: 74.8 kg

DRUGS (4)
  1. CRESTOR [Suspect]
     Indication: BLOOD CHOLESTEROL INCREASED
     Route: 048
     Dates: start: 20071030, end: 20071201
  2. HYZAAR [Concomitant]
     Indication: BLOOD PRESSURE
  3. ASPIRIN [Concomitant]
  4. VITAMIN CAP [Concomitant]

REACTIONS (3)
  - BACK PAIN [None]
  - DECREASED APPETITE [None]
  - WEIGHT DECREASED [None]
